FAERS Safety Report 19786763 (Version 2)
Quarter: 2021Q3

REPORT INFORMATION
  Report Type: Spontaneous
  Country: NL (occurrence: NL)
  Receive Date: 20210903
  Receipt Date: 20210917
  Transmission Date: 20211014
  Serious: Yes (Life-Threatening, Hospitalization, Disabling, Other)
  Sender: FDA-Public Use
  Company Number: NL-PFIZER INC-202101125679

PATIENT
  Age: 21 Year
  Sex: Female
  Weight: 61.5 kg

DRUGS (2)
  1. COMIRNATY [Suspect]
     Active Substance: TOZINAMERAN
     Indication: COVID-19 IMMUNISATION
     Dosage: DOSE 1, 0.3 ML SINGLE
     Dates: start: 20210618, end: 20210618
  2. ETHINYLESTRADIOL/LEVONORGESTREL [Suspect]
     Active Substance: ETHINYL ESTRADIOL\LEVONORGESTREL
     Indication: MENSTRUAL DISCOMFORT
     Dosage: 1 DF, CYCLIC (1X PER DAY 1 PIECE FOR 21 DAYS, THEN 7 DAYS REST)
     Dates: start: 2018, end: 20210713

REACTIONS (1)
  - Cerebral infarction [Recovering/Resolving]

NARRATIVE: CASE EVENT DATE: 20210705
